FAERS Safety Report 24402157 (Version 1)
Quarter: 2024Q4

REPORT INFORMATION
  Report Type: Spontaneous
  Country: US (occurrence: US)
  Receive Date: 20241007
  Receipt Date: 20241007
  Transmission Date: 20250115
  Serious: No
  Sender: MERCK
  Company Number: US-009507513-2409USA006572

PATIENT
  Sex: Female
  Weight: 93.3 kg

DRUGS (12)
  1. WINREVAIR [Suspect]
     Active Substance: SOTATERCEPT-CSRK
     Indication: Product used for unknown indication
  2. REMODULIN [Suspect]
     Active Substance: TREPROSTINIL
     Indication: Pulmonary arterial hypertension
     Dosage: 0.042 MICROGRAM PER KILOGRAM, SELF-FILLED WITH 2.2ML PER CASSETTE; PUMP RATE OF 24MCL PER HOUR), CON
     Route: 058
     Dates: start: 20220919
  3. OPSUMIT [Concomitant]
     Active Substance: MACITENTAN
  4. OMEPRAZOLE [Concomitant]
     Active Substance: OMEPRAZOLE
  5. UPTRAVI [Concomitant]
     Active Substance: SELEXIPAG
  6. ADCIRCA [Concomitant]
     Active Substance: TADALAFIL
  7. SPIRONOLACTONE [Concomitant]
     Active Substance: SPIRONOLACTONE
  8. BUMETANIDE [Concomitant]
     Active Substance: BUMETANIDE
  9. GABAPENTIN [Concomitant]
     Active Substance: GABAPENTIN
  10. IBU [Concomitant]
     Active Substance: IBUPROFEN
  11. TORSEMIDE [Concomitant]
     Active Substance: TORSEMIDE
  12. EXCEDRIN MIGRAINE [Concomitant]
     Active Substance: ACETAMINOPHEN\ASPIRIN\CAFFEINE

REACTIONS (5)
  - Arthralgia [Recovering/Resolving]
  - Pain in extremity [Recovering/Resolving]
  - Pain in jaw [Recovering/Resolving]
  - Headache [Recovering/Resolving]
  - Nausea [Recovering/Resolving]
